FAERS Safety Report 14574483 (Version 1)
Quarter: 2018Q1

REPORT INFORMATION
  Report Type: Spontaneous
  Country: US (occurrence: US)
  Receive Date: 20180224
  Receipt Date: 20180224
  Transmission Date: 20180509
  Serious: Yes (Life-Threatening, Disabling)
  Sender: FDA-Public Use
  Company Number: None

PATIENT
  Sex: Male
  Weight: 108 kg

DRUGS (5)
  1. CIPROFLOXACIN. [Suspect]
     Active Substance: CIPROFLOXACIN
     Indication: URINARY TRACT INFECTION
     Dosage: ?          QUANTITY:42 TABLET(S);?
     Route: 048
     Dates: start: 20170605, end: 20170608
  2. MAGNESIUM [Concomitant]
     Active Substance: MAGNESIUM
  3. DAILY VITAMN [Concomitant]
  4. PROBIOTIC [Concomitant]
     Active Substance: PROBIOTICS NOS
  5. VITAMIN B12 [Concomitant]
     Active Substance: CYANOCOBALAMIN

REACTIONS (11)
  - Pain [None]
  - Depression [None]
  - Gait disturbance [None]
  - Crying [None]
  - Muscle spasms [None]
  - Suicidal ideation [None]
  - Weight decreased [None]
  - Memory impairment [None]
  - Musculoskeletal stiffness [None]
  - Asthenia [None]
  - Mental disorder [None]
